FAERS Safety Report 8493513-7 (Version None)
Quarter: 2012Q3

REPORT INFORMATION
  Report Type: 
  Country: None (occurrence: None)
  Receive Date: 20120706
  Receipt Date: 20120627
  Transmission Date: 20120928
  Serious: Yes (Hospitalization)
  Sender: FDA-Public Use
  Company Number: DE-ASTRAZENECA-2012SE26042

PATIENT
  Age: 24 Year
  Sex: Female
  Weight: 55 kg

DRUGS (3)
  1. SEROQUEL XR [Suspect]
     Route: 048
     Dates: start: 20120419, end: 20120419
  2. SEROQUEL XR [Suspect]
     Indication: PSYCHOTIC DISORDER
     Route: 048
     Dates: start: 20120418, end: 20120418
  3. LORAZEPAM [Concomitant]
     Dosage: 0.5-0.5-1-1
     Route: 048

REACTIONS (4)
  - ALTERED STATE OF CONSCIOUSNESS [None]
  - DELIRIUM [None]
  - URINARY INCONTINENCE [None]
  - CONVULSION [None]
